FAERS Safety Report 7824090-9 (Version None)
Quarter: 2011Q4

REPORT INFORMATION
  Report Type: 
  Country: None (occurrence: None)
  Receive Date: 20111019
  Receipt Date: 20111017
  Transmission Date: 20120403
  Serious: Yes (Hospitalization)
  Sender: FDA-Public Use
  Company Number: PHHY2011US59735

PATIENT
  Sex: Female
  Weight: 54.5 kg

DRUGS (2)
  1. EXJADE [Suspect]
     Indication: HAEMOCHROMATOSIS
     Dosage: 1000 MG, EVERY DAY
     Route: 048
     Dates: start: 20110601, end: 20110901
  2. EXJADE [Suspect]
     Indication: IRON OVERLOAD

REACTIONS (4)
  - BACK PAIN [None]
  - FATIGUE [None]
  - WEIGHT DECREASED [None]
  - ABDOMINAL PAIN UPPER [None]
